FAERS Safety Report 19906166 (Version 1)
Quarter: 2021Q4

REPORT INFORMATION
  Report Type: Spontaneous
  Country: CA (occurrence: CA)
  Receive Date: 20211001
  Receipt Date: 20211001
  Transmission Date: 20220304
  Serious: Yes (Other)
  Sender: FDA-Public Use
  Company Number: CA-TEVA-2021-CA-1959509

PATIENT
  Age: 53 Year
  Sex: Female
  Weight: 61 kg

DRUGS (16)
  1. DULOXETINE [Suspect]
     Active Substance: DULOXETINE
     Indication: Depression
     Dosage: 60 MILLIGRAM DAILY;
     Route: 048
  2. DULOXETINE [Suspect]
     Active Substance: DULOXETINE
     Indication: Anxiety
  3. ACTONEL [Concomitant]
     Active Substance: RISEDRONATE SODIUM
  4. ARIPIPRAZOLE [Concomitant]
     Active Substance: ARIPIPRAZOLE
  5. INSPIOLTO RESPIMATFOR ORAL INHALATION.WITH INSPIOLTORESPIMAT INHALER [Concomitant]
  6. LOPERAMIDE [Concomitant]
     Active Substance: LOPERAMIDE
  7. LORAZEPAM [Concomitant]
     Active Substance: LORAZEPAM
  8. MIRTAZAPINE [Concomitant]
     Active Substance: MIRTAZAPINE
  9. NORTRIPTYLINE [Concomitant]
     Active Substance: NORTRIPTYLINE
  10. OMNARIS [Concomitant]
     Active Substance: CICLESONIDE
  11. REACTINE [Concomitant]
  12. ALBUTEROL [Concomitant]
     Active Substance: ALBUTEROL
  13. PANTOPRAZOLE MAGNESIUM [Concomitant]
     Active Substance: PANTOPRAZOLE MAGNESIUM
  14. TYLENOL [Concomitant]
     Active Substance: ACETAMINOPHEN
  15. VITAMIN B12 [Concomitant]
     Active Substance: CYANOCOBALAMIN
  16. VITAMIN D [Concomitant]
     Active Substance: VITAMIN D NOS

REACTIONS (4)
  - Depression [Recovered/Resolved]
  - Mental impairment [Recovered/Resolved]
  - Mood swings [Recovered/Resolved]
  - Product substitution issue [Recovered/Resolved]
